FAERS Safety Report 25450375 (Version 1)
Quarter: 2025Q2

REPORT INFORMATION
  Report Type: Spontaneous
  Country: US (occurrence: US)
  Receive Date: 20250618
  Receipt Date: 20250618
  Transmission Date: 20250716
  Serious: No
  Sender: AMGEN
  Company Number: US-AMGEN-USASP2025116984

PATIENT

DRUGS (1)
  1. UPLIZNA [Suspect]
     Active Substance: INEBILIZUMAB-CDON
     Indication: Immunoglobulin G4 related disease
     Route: 040
     Dates: start: 20250515

REACTIONS (4)
  - Pruritus [Unknown]
  - Chills [Unknown]
  - Headache [Unknown]
  - Pyrexia [Unknown]

NARRATIVE: CASE EVENT DATE: 20250101
